FAERS Safety Report 10094816 (Version 1)
Quarter: 2014Q2

REPORT INFORMATION
  Report Type: Spontaneous
  Country: US (occurrence: US)
  Receive Date: 20140422
  Receipt Date: 20140422
  Transmission Date: 20141212
  Serious: Yes (Other)
  Sender: FDA-Public Use
  Company Number: US-PFIZER INC-2014110186

PATIENT
  Age: 55 Year
  Sex: Female
  Weight: 66.67 kg

DRUGS (13)
  1. CHANTIX [Suspect]
     Indication: SMOKING CESSATION THERAPY
     Dosage: 0.5 MG, DAILY
     Route: 048
     Dates: start: 2011, end: 2011
  2. CHANTIX [Suspect]
     Dosage: 1 MG, TWO TIMES A DAY
     Route: 048
  3. MORPHINE [Concomitant]
     Indication: PAIN
     Dosage: 220 MG, DAILY
  4. PLAVIX [Concomitant]
     Indication: CARDIAC FAILURE CONGESTIVE
     Dosage: 75 MG, UNK
  5. ASPIRIN [Concomitant]
     Indication: CARDIAC FAILURE CONGESTIVE
     Dosage: 81 MG, DAILY
     Dates: start: 2013
  6. LASIX [Concomitant]
     Dosage: 20 MG, DAILY
  7. POTASSIUM [Concomitant]
     Dosage: 10 MG, UNK
  8. LISINOPRIL [Concomitant]
     Indication: HYPERTENSION
     Dosage: 2.5 MG, UNK
  9. COREG [Concomitant]
     Dosage: 3.25 MG, TWO TIMES A DAY
  10. VITAMIN C [Concomitant]
     Dosage: 100 MG, DAILY
  11. METHADONE [Concomitant]
     Dosage: 5 MG, UNK
  12. FOLIC ACID [Concomitant]
     Dosage: 1 MG, DAILY
  13. LYRICA [Concomitant]
     Indication: NEURALGIA
     Dosage: UNK

REACTIONS (7)
  - Depression [Recovering/Resolving]
  - Agitation [Unknown]
  - Irritability [Unknown]
  - Malaise [Unknown]
  - Anger [Unknown]
  - Feeling abnormal [Unknown]
  - Hostility [Unknown]
